FAERS Safety Report 10182605 (Version 1)
Quarter: 2014Q2

REPORT INFORMATION
  Report Type: Spontaneous
  Country: US (occurrence: None)
  Receive Date: 20140519
  Receipt Date: 20140519
  Transmission Date: 20141212
  Serious: Yes (Disabling)
  Sender: FDA-Public Use
  Company Number: None

PATIENT
  Age: 64 Year
  Sex: Female
  Weight: 52.16 kg

DRUGS (2)
  1. VIIBRYD [Suspect]
     Indication: FIBROMYALGIA
     Dosage: SPRING TO FALL 2013, ROUGHLY, 40 MG, TOOK20MG, MYCHOICE, TAKEN BY MOUTH
     Route: 048
  2. VIIBRYD [Suspect]
     Indication: DEPRESSION
     Dosage: SPRING TO FALL 2013, ROUGHLY, 40 MG, TOOK20MG, MYCHOICE, TAKEN BY MOUTH
     Route: 048

REACTIONS (8)
  - Mania [None]
  - Bipolar disorder [None]
  - Rapid eye movements sleep abnormal [None]
  - Tremor [None]
  - Hallucination [None]
  - Convulsion [None]
  - Lung disorder [None]
  - Systemic lupus erythematosus [None]
